FAERS Safety Report 4698790-6 (Version None)
Quarter: 2005Q2

REPORT INFORMATION
  Report Type: 
  Country: None (occurrence: None)
  Receive Date: 20050622
  Receipt Date: 20050614
  Transmission Date: 20051028
  Serious: Yes (Hospitalization)
  Sender: FDA-Public Use
  Company Number: 163-20785-04110038

PATIENT
  Age: 63 Year
  Sex: Male

DRUGS (4)
  1. THALOMID [Suspect]
     Indication: MULTIPLE MYELOMA
     Dosage: 200 MG, DAILY, ORALY
     Route: 048
     Dates: start: 20041005, end: 20041011
  2. THALOMID [Suspect]
     Indication: MULTIPLE MYELOMA
     Dosage: 200 MG, DAILY, ORALY
     Route: 048
     Dates: start: 20041101
  3. DECADRON [Suspect]
     Indication: MULTIPLE MYELOMA
     Dosage: 5 PILLS (20 MG TOTAL) DAILY X 4 DAYS, THEN TAPERING ^4,3,2,1^; RESTART 19NOV04, EVERY TWO WEEKS, ORA
     Route: 048
     Dates: start: 20041105
  4. COUMADIN [Concomitant]

REACTIONS (3)
  - DIZZINESS [None]
  - LOSS OF CONSCIOUSNESS [None]
  - VISION BLURRED [None]
